FAERS Safety Report 21351527 (Version 2)
Quarter: 2022Q3

REPORT INFORMATION
  Report Type: Spontaneous
  Country: RU (occurrence: None)
  Receive Date: 20220919
  Receipt Date: 20220923
  Transmission Date: 20221027
  Serious: Yes (Other)
  Sender: FDA-Public Use
  Company Number: RU-ROCHE-3178070

PATIENT

DRUGS (6)
  1. TECENTRIQ [Suspect]
     Active Substance: ATEZOLIZUMAB
     Indication: Lung carcinoma cell type unspecified stage II
     Route: 065
     Dates: start: 201911, end: 202108
  2. BEVACIZUMAB [Suspect]
     Active Substance: BEVACIZUMAB
     Indication: Lung carcinoma cell type unspecified stage II
     Route: 065
  3. CISPLATIN [Suspect]
     Active Substance: CISPLATIN
     Indication: Lung carcinoma cell type unspecified stage II
     Route: 065
  4. PEMETREXED [Suspect]
     Active Substance: PEMETREXED
     Indication: Lung carcinoma cell type unspecified stage II
     Route: 065
  5. CARBOPLATIN [Suspect]
     Active Substance: CARBOPLATIN
     Indication: Lung carcinoma cell type unspecified stage II
     Route: 065
  6. PACLITAXEL [Suspect]
     Active Substance: PACLITAXEL
     Indication: Lung carcinoma cell type unspecified stage II
     Route: 065

REACTIONS (11)
  - Cholecystitis chronic [Unknown]
  - Metastases to lymph nodes [Unknown]
  - Renal lipoma [Unknown]
  - Prostatic disorder [Unknown]
  - Ill-defined disorder [Unknown]
  - Peritoneal disorder [Unknown]
  - Diverticulum intestinal [Unknown]
  - COVID-19 [Unknown]
  - Productive cough [Unknown]
  - Pancreatic disorder [Unknown]
  - Liver disorder [Unknown]
